FAERS Safety Report 5402082-7 (Version None)
Quarter: 2007Q3

REPORT INFORMATION
  Report Type: 
  Country: None (occurrence: None)
  Receive Date: 20070727
  Receipt Date: 20070717
  Transmission Date: 20080115
  Serious: Yes (Other)
  Sender: FDA-Public Use
  Company Number: S07-USA-03069-01

PATIENT
  Age: 29 Year
  Sex: Female

DRUGS (2)
  1. LEXAPRO [Suspect]
     Indication: ANXIETY
     Dosage: 10 MG QD PO
     Route: 048
     Dates: start: 20070705, end: 20070705
  2. ATIVAN [Concomitant]

REACTIONS (5)
  - ELECTROCARDIOGRAM CHANGE [None]
  - HEART RATE DECREASED [None]
  - HYPERHIDROSIS [None]
  - PALPITATIONS [None]
  - VOMITING [None]
